FAERS Safety Report 8012320-2 (Version None)
Quarter: 2011Q4

REPORT INFORMATION
  Report Type: 
  Country: None (occurrence: None)
  Receive Date: 20111228
  Receipt Date: 20111216
  Transmission Date: 20120403
  Serious: Yes (Hospitalization)
  Sender: FDA-Public Use
  Company Number: FR-SANOFI-AVENTIS-2011SA023790

PATIENT
  Age: 88 Year
  Sex: Male

DRUGS (10)
  1. TRAMADOL HCL [Suspect]
     Indication: PAIN
     Route: 048
     Dates: start: 20110305, end: 20110310
  2. ACETAMINOPHEN [Concomitant]
     Indication: PAIN
     Route: 048
     Dates: start: 20110302
  3. ALFUZOSIN HCL [Suspect]
     Route: 048
     Dates: start: 20110303, end: 20110310
  4. CORDARONE [Concomitant]
     Route: 048
     Dates: start: 20110302
  5. LASIX [Concomitant]
     Route: 048
     Dates: start: 20110302
  6. ESOMEPRAZOLE [Concomitant]
     Route: 048
     Dates: start: 20110308
  7. PLAVIX [Concomitant]
     Indication: THROMBOSIS
     Route: 048
     Dates: start: 20110302
  8. CALCIPARINE [Concomitant]
     Indication: THROMBOSIS
     Route: 058
     Dates: start: 20110302
  9. SECTRAL [Concomitant]
     Route: 048
     Dates: start: 20110302
  10. OMEPRAZOLE [Concomitant]
     Route: 048
     Dates: start: 20110302, end: 20110308

REACTIONS (3)
  - DISORIENTATION [None]
  - HALLUCINATION, VISUAL [None]
  - CONFUSIONAL STATE [None]
